FAERS Safety Report 18690075 (Version 1)
Quarter: 2020Q4

REPORT INFORMATION
  Report Type: Spontaneous
  Country: US (occurrence: US)
  Receive Date: 20201231
  Receipt Date: 20201231
  Transmission Date: 20210114
  Serious: Yes (Other)
  Sender: FDA-Public Use
  Company Number: US-TEVA-2020-US-1863223

PATIENT
  Age: 55 Year
  Sex: Female

DRUGS (4)
  1. PREDNISONE. [Suspect]
     Active Substance: PREDNISONE
     Dosage: 20 MILLIGRAM DAILY;
     Route: 048
  2. PREDNISONE. [Suspect]
     Active Substance: PREDNISONE
     Indication: EOSINOPHILIC PNEUMONIA CHRONIC
     Dosage: INITIAL DOSE NOT STATED
     Route: 048
  3. SALMETEROL [Concomitant]
     Active Substance: SALMETEROL
     Indication: COUGH VARIANT ASTHMA
     Dosage: THE DOSE WAS INCREASED FURTHER
     Route: 065
  4. FLUTICASONE. [Concomitant]
     Active Substance: FLUTICASONE
     Indication: COUGH VARIANT ASTHMA
     Dosage: THE DOSE WAS INCREASED FURTHER
     Route: 055

REACTIONS (6)
  - Paranoia [Unknown]
  - Anxiety [Unknown]
  - Rebound effect [Recovered/Resolved]
  - Insomnia [Unknown]
  - Eosinophilic pneumonia chronic [Recovered/Resolved]
  - Irritability [Unknown]
